FAERS Safety Report 6403534-3 (Version None)
Quarter: 2009Q4

REPORT INFORMATION
  Report Type: 
  Country: None (occurrence: None)
  Receive Date: 20091016
  Receipt Date: 20091006
  Transmission Date: 20100525
  Serious: Yes (Hospitalization)
  Sender: FDA-Public Use
  Company Number: NL-NOVOPROD-292630

PATIENT
  Age: 78 Year
  Sex: Male

DRUGS (8)
  1. ACTRAPID [Suspect]
     Indication: DRUG USE FOR UNKNOWN INDICATION
     Dosage: }10 IU/HOUR
     Route: 058
     Dates: start: 20090930
  2. HEPARIN [Concomitant]
  3. ENOXIMONE [Concomitant]
  4. NORADRENALIN                       /00127501/ [Concomitant]
  5. LIDOCAINE [Concomitant]
  6. CORDARONE [Concomitant]
  7. FENTANYL [Concomitant]
  8. ANTIBIOTICS [Concomitant]

REACTIONS (2)
  - CARDIOGENIC SHOCK [None]
  - DRUG INEFFECTIVE [None]
